FAERS Safety Report 16766411 (Version 1)
Quarter: 2019Q3

REPORT INFORMATION
  Report Type: Spontaneous
  Country: US (occurrence: US)
  Receive Date: 20190903
  Receipt Date: 20190903
  Transmission Date: 20191005
  Serious: No
  Sender: FDA-Public Use
  Company Number: US-ELI_LILLY_AND_COMPANY-US201908011153

PATIENT
  Sex: Male

DRUGS (1)
  1. CETUXIMAB. [Suspect]
     Active Substance: CETUXIMAB
     Indication: METASTATIC SQUAMOUS CELL CARCINOMA
     Dosage: UNK, UNKNOWN
     Route: 065
     Dates: start: 20171219

REACTIONS (4)
  - Thrombocytopenia [Unknown]
  - Decreased appetite [Unknown]
  - Rash [Unknown]
  - Insomnia [Unknown]
